FAERS Safety Report 7405807-4 (Version None)
Quarter: 2011Q2

REPORT INFORMATION
  Report Type: 
  Country: None (occurrence: None)
  Receive Date: 20110411
  Receipt Date: 20110401
  Transmission Date: 20111010
  Serious: Yes (Hospitalization)
  Sender: FDA-Public Use
  Company Number: DE-ROCHE-769537

PATIENT
  Sex: Male
  Weight: 73.3 kg

DRUGS (6)
  1. TARGIN [Suspect]
     Indication: PAIN
     Route: 065
  2. FOLINIC ACID [Suspect]
     Indication: METASTATIC GASTRIC CANCER
     Route: 065
  3. NOVAMIN [Suspect]
     Indication: PAIN
     Route: 065
  4. CISPLATIN [Suspect]
     Indication: METASTATIC GASTRIC CANCER
     Route: 065
  5. FLUOROURACIL [Suspect]
     Indication: METASTATIC GASTRIC CANCER
     Route: 065
  6. TRASTUZUMAB [Suspect]
     Indication: METASTATIC GASTRIC CANCER
     Route: 065

REACTIONS (7)
  - NAUSEA [None]
  - DIARRHOEA [None]
  - RENAL FAILURE [None]
  - ABDOMINAL PAIN [None]
  - VOMITING [None]
  - URINARY TRACT INFECTION [None]
  - DEHYDRATION [None]
